FAERS Safety Report 6380676-2 (Version None)
Quarter: 2009Q3

REPORT INFORMATION
  Report Type: 
  Country: None (occurrence: None)
  Receive Date: 20090929
  Receipt Date: 20090608
  Transmission Date: 20100115
  Serious: No
  Sender: FDA-Public Use
  Company Number: US-BAYER-200913962BCC

PATIENT
  Age: 19 Year

DRUGS (4)
  1. ALEVE [Suspect]
     Indication: DRUG USE FOR UNKNOWN INDICATION
     Dosage: TOTAL DAILY DOSE: 880 MG  UNIT DOSE: 220 MG
     Route: 048
  2. TRAMADOL HCL [Concomitant]
     Route: 065
  3. SULFAMETHOXAZOLE [Concomitant]
     Route: 065
  4. TRIMETHOPRIM [Concomitant]
     Route: 065

REACTIONS (1)
  - NO ADVERSE EVENT [None]
